FAERS Safety Report 8107006-X (Version None)
Quarter: 2012Q1

REPORT INFORMATION
  Report Type: 
  Country: None (occurrence: None)
  Receive Date: 20120202
  Receipt Date: 20120202
  Transmission Date: 20120608
  Serious: No
  Sender: FDA-Public Use
  Company Number: None

PATIENT
  Age: 41 Year
  Sex: Male
  Weight: 58.967 kg

DRUGS (3)
  1. HYOSCYAMINE [Suspect]
     Indication: ABDOMINAL DISCOMFORT
     Dosage: 1 PILL
     Route: 048
     Dates: start: 20111123, end: 20120107
  2. HYOSCYAMINE [Suspect]
     Indication: NAUSEA
     Dosage: 1 PILL
     Route: 048
     Dates: start: 20111123, end: 20120107
  3. HYOSCYAMINE [Suspect]
     Indication: VOMITING
     Dosage: 1 PILL
     Route: 048
     Dates: start: 20111123, end: 20120107

REACTIONS (2)
  - DEPRESSION [None]
  - MOOD ALTERED [None]
